FAERS Safety Report 10738500 (Version 1)
Quarter: 2015Q1

REPORT INFORMATION
  Report Type: Spontaneous
  Country: US (occurrence: None)
  Receive Date: 20150112
  Receipt Date: 20150112
  Transmission Date: 20150721
  Serious: Yes (Death)
  Sender: FDA-Public Use
  Company Number: 1338115

PATIENT
  Age: 82 Year
  Sex: Female

DRUGS (2)
  1. UNFRACTIONATED HEPARIN (HEPARIN SODIUM) [Concomitant]
  2. ALTEPLASE (ALTEPLASE) [Suspect]
     Active Substance: ALTEPLASE
     Indication: PULMONARY EMBOLISM

REACTIONS (1)
  - Pulmonary embolism [None]
